FAERS Safety Report 6891780-4 (Version None)
Quarter: 2010Q3

REPORT INFORMATION
  Report Type: 
  Country: None (occurrence: None)
  Receive Date: 20100731
  Receipt Date: 20071201
  Transmission Date: 20110219
  Serious: Yes (Other)
  Sender: FDA-Public Use
  Company Number: US-PFIZER INC-2007085582

PATIENT
  Sex: Female
  Weight: 58.6 kg

DRUGS (4)
  1. GABAPENTIN [Suspect]
     Indication: PAIN IN EXTREMITY
     Dates: start: 20070801
  2. METOPROLOL TARTRATE [Concomitant]
     Indication: CARDIAC DISORDER
  3. SYNTHROID [Concomitant]
     Indication: THYROID DISORDER
  4. PLAVIX [Concomitant]

REACTIONS (1)
  - CONVULSION [None]
